FAERS Safety Report 24823106 (Version 2)
Quarter: 2025Q1

REPORT INFORMATION
  Report Type: Spontaneous
  Country: NL (occurrence: NL)
  Receive Date: 20250109
  Receipt Date: 20250309
  Transmission Date: 20250408
  Serious: Yes (Other)
  Sender: AMGEN
  Company Number: NL-PFIZER INC-202500000911

PATIENT
  Sex: Female

DRUGS (1)
  1. ENBREL [Suspect]
     Active Substance: ETANERCEPT
     Indication: Rheumatic disorder
     Route: 065
     Dates: start: 2022

REACTIONS (4)
  - Cataract [Unknown]
  - Visual impairment [Unknown]
  - Dry eye [Unknown]
  - Rash [Unknown]
